FAERS Safety Report 11529173 (Version 1)
Quarter: 2015Q3

REPORT INFORMATION
  Report Type: Spontaneous
  Country: MX (occurrence: MX)
  Receive Date: 20150921
  Receipt Date: 20150921
  Transmission Date: 20151125
  Serious: Yes (Death)
  Sender: FDA-Public Use
  Company Number: MX-ROCHE-1608937

PATIENT
  Age: 3 Month
  Sex: Male
  Weight: 1.02 kg

DRUGS (4)
  1. PHENYTOIN. [Concomitant]
     Active Substance: PHENYTOIN
     Indication: SEIZURE
     Route: 042
     Dates: start: 20081108, end: 20090202
  2. AVASTIN [Suspect]
     Active Substance: BEVACIZUMAB
     Indication: RETINOPATHY OF PREMATURITY
     Dosage: OU (EACH EYE)
     Route: 050
     Dates: start: 20081218
  3. PHENOBARBITAL. [Concomitant]
     Active Substance: PHENOBARBITAL
     Indication: SEIZURE
     Route: 042
     Dates: start: 20090106, end: 20090202
  4. SILDENAFIL. [Concomitant]
     Active Substance: SILDENAFIL
     Indication: BRONCHOPULMONARY DYSPLASIA
     Route: 065
     Dates: start: 20081130, end: 20090102

REACTIONS (5)
  - Brain operation [Fatal]
  - Ventriculo-peritoneal shunt [Fatal]
  - Volvulus [Fatal]
  - Off label use [Unknown]
  - Intestinal obstruction [Fatal]

NARRATIVE: CASE EVENT DATE: 20090202
